FAERS Safety Report 7601910-4 (Version None)
Quarter: 2011Q3

REPORT INFORMATION
  Report Type: 
  Country: None (occurrence: None)
  Receive Date: 20110711
  Receipt Date: 20110707
  Transmission Date: 20111222
  Serious: Yes (Other)
  Sender: FDA-Public Use
  Company Number: US-PFIZER INC-2011153922

PATIENT
  Sex: Male
  Weight: 81.633 kg

DRUGS (2)
  1. KEPPRA [Concomitant]
     Dosage: 4 MG, UNK
  2. LYRICA [Suspect]
     Indication: CONVULSION
     Dosage: 75 MG, 4X/DAY
     Route: 048
     Dates: start: 20110501, end: 20110701

REACTIONS (6)
  - AGGRESSION [None]
  - HALLUCINATION [None]
  - VISION BLURRED [None]
  - DRY MOUTH [None]
  - DIZZINESS [None]
  - MICTURITION DISORDER [None]
